FAERS Safety Report 11404504 (Version 1)
Quarter: 2015Q3

REPORT INFORMATION
  Report Type: Spontaneous
  Country: IN (occurrence: IN)
  Receive Date: 20150821
  Receipt Date: 20150821
  Transmission Date: 20151125
  Serious: Yes (Other)
  Sender: FDA-Public Use
  Company Number: PHHY2015IN098399

PATIENT
  Age: 15 Year
  Sex: Male
  Weight: 68 kg

DRUGS (2)
  1. METHOTREXATE [Concomitant]
     Active Substance: METHOTREXATE
     Indication: PSORIASIS
     Dosage: 2.5 MG, BID, TWO TO THREE DOSES EVERY WEEK
     Route: 048
  2. CLOBETASOL PROPIONATE. [Suspect]
     Active Substance: CLOBETASOL PROPIONATE
     Indication: PSORIASIS
     Route: 061

REACTIONS (16)
  - Pustular psoriasis [Unknown]
  - Weight increased [Unknown]
  - Drug administration error [Unknown]
  - Skin striae [Unknown]
  - Face oedema [Unknown]
  - Gynaecomastia [Unknown]
  - Secondary hypogonadism [Unknown]
  - Testicular disorder [Unknown]
  - Hypertrichosis [Unknown]
  - Rash pustular [Unknown]
  - Dermatitis exfoliative [Unknown]
  - Cushing^s syndrome [Unknown]
  - Contusion [Unknown]
  - Skin lesion [Unknown]
  - Muscular weakness [Unknown]
  - Neck mass [Unknown]
